FAERS Safety Report 15665739 (Version 1)
Quarter: 2018Q4

REPORT INFORMATION
  Report Type: Spontaneous
  Country: US (occurrence: US)
  Receive Date: 20181128
  Receipt Date: 20181128
  Transmission Date: 20190205
  Serious: No
  Sender: FDA-Public Use
  Company Number: US-ASTRAZENECA-2018SF43443

PATIENT
  Age: 70 Year
  Sex: Female
  Weight: 65.8 kg

DRUGS (2)
  1. SYMBICORT [Suspect]
     Active Substance: BUDESONIDE\FORMOTEROL FUMARATE DIHYDRATE
     Indication: CHRONIC OBSTRUCTIVE PULMONARY DISEASE
     Dosage: 160/4.5 MCG 2 PUFFS IN THE MORNING AND 2 PUFF IN THE EVENING, TWO TIMES A DAY
     Route: 055
     Dates: start: 2013
  2. ALBUTEROL. [Concomitant]
     Active Substance: ALBUTEROL
     Indication: CHRONIC OBSTRUCTIVE PULMONARY DISEASE
     Dosage: AS REQUIRED
     Route: 055
     Dates: start: 2013

REACTIONS (5)
  - Product dose omission [Unknown]
  - Device malfunction [Unknown]
  - Visual impairment [Not Recovered/Not Resolved]
  - Intentional device misuse [Unknown]
  - Wrong technique in device usage process [Unknown]

NARRATIVE: CASE EVENT DATE: 2013
